FAERS Safety Report 8235818-0 (Version None)
Quarter: 2012Q1

REPORT INFORMATION
  Report Type: 
  Country: None (occurrence: None)
  Receive Date: 20120326
  Receipt Date: 20120313
  Transmission Date: 20120608
  Serious: Yes (Hospitalization)
  Sender: FDA-Public Use
  Company Number: DE-FRI-1000026504

PATIENT
  Age: 78 Year
  Sex: Male
  Weight: 56 kg

DRUGS (6)
  1. SPIRIVA [Concomitant]
     Indication: CHRONIC OBSTRUCTIVE PULMONARY DISEASE
     Dates: start: 20050101
  2. TELMISARTAN [Concomitant]
     Indication: HYPERTENSION
     Dosage: 80/12.5
     Dates: start: 20090101
  3. FLUTICASONE PROPIONATE/SALMETEROL [Concomitant]
     Indication: CHRONIC OBSTRUCTIVE PULMONARY DISEASE
     Dosage: 50/500
     Dates: start: 20070101
  4. NIFEHEXAL [Concomitant]
     Indication: HYPERTENSION
     Dates: start: 20050101
  5. JODETTEN [Concomitant]
     Indication: GOITRE
     Dates: start: 20040101
  6. ROFLUMILAST [Suspect]
     Indication: CHRONIC OBSTRUCTIVE PULMONARY DISEASE
     Route: 048
     Dates: start: 20110314, end: 20111001

REACTIONS (5)
  - GENERAL PHYSICAL HEALTH DETERIORATION [None]
  - WEIGHT DECREASED [None]
  - PYREXIA [None]
  - ANAEMIA [None]
  - GOODPASTURE'S SYNDROME [None]
